FAERS Safety Report 6371597-X (Version None)
Quarter: 2009Q3

REPORT INFORMATION
  Report Type: 
  Country: None (occurrence: None)
  Receive Date: 20090923
  Receipt Date: 20080529
  Transmission Date: 20100115
  Serious: Yes (Other)
  Sender: FDA-Public Use
  Company Number: US-ASTRAZENECA-2007UW18976

PATIENT
  Age: 9217 Day
  Sex: Male

DRUGS (17)
  1. SEROQUEL [Suspect]
     Route: 048
     Dates: start: 20030101, end: 20050701
  2. SEROQUEL [Suspect]
     Route: 048
     Dates: start: 20040610
  3. HYDROCODONE BITARTRATE AND ACETAMINOPHEN [Concomitant]
     Dosage: 5/500
     Dates: start: 20011227
  4. PERCOCET [Concomitant]
     Dosage: 7.5/325 MG
     Dates: start: 20030919
  5. OXYCONTIN [Concomitant]
     Dosage: 10-80 MG
     Dates: start: 20030225
  6. METRONIDAZOLE [Concomitant]
     Dates: start: 20030426
  7. CHLORHEXIDINE GLUCONATE [Concomitant]
     Dosage: 0.12 %
     Dates: start: 20030426
  8. NAPROXEN [Concomitant]
     Dates: start: 20030503
  9. DILAUDID [Concomitant]
     Dates: start: 20030507
  10. DIPHENHYDRAMINE HCL [Concomitant]
     Dates: start: 20030604
  11. DIAZEPAM [Concomitant]
     Dosage: 5-10 MG
     Dates: start: 20030630
  12. BIAXIN XL [Concomitant]
     Dates: start: 20031015
  13. BUPROPION HCL ER [Concomitant]
     Dates: start: 20040603
  14. BUPROPION HCL [Concomitant]
     Dates: start: 20040610
  15. AMBIEN [Concomitant]
     Dates: start: 20040729
  16. ALPRAZOLAM [Concomitant]
     Dates: start: 20041108
  17. DEPAKOTE ER [Concomitant]
     Dates: start: 20041122

REACTIONS (2)
  - DIABETES MELLITUS [None]
  - HYPERGLYCAEMIC HYPEROSMOLAR NONKETOTIC SYNDROME [None]
